FAERS Safety Report 4596947-6 (Version None)
Quarter: 2005Q1

REPORT INFORMATION
  Report Type: 
  Country: None (occurrence: None)
  Receive Date: 20050228
  Receipt Date: 20041230
  Transmission Date: 20050727
  Serious: Yes (Hospitalization, Disabling, Other)
  Sender: FDA-Public Use
  Company Number: 2005025461

PATIENT
  Sex: Male
  Weight: 92.9874 kg

DRUGS (4)
  1. CELEBREX [Suspect]
     Indication: ARTHRITIS
     Dosage: 200 OR 400 MG (DAILY), ORAL
     Route: 048
  2. MULTIVITAMINS (ASCORBIC ACID), ERGOCALCIFEROL, FOLIC ACID, NICOTINAMID [Concomitant]
  3. VENLAFAXINE HCL [Concomitant]
  4. HYZAAR [Concomitant]

REACTIONS (13)
  - ABDOMINAL ADHESIONS [None]
  - AORTIC DISORDER [None]
  - CARDIAC FAILURE [None]
  - CARDIAC PACEMAKER INSERTION [None]
  - CORONARY ARTERY SURGERY [None]
  - DEPRESSION [None]
  - DYSPNOEA [None]
  - FEELING ABNORMAL [None]
  - HIP SURGERY [None]
  - MEMORY IMPAIRMENT [None]
  - MOBILITY DECREASED [None]
  - POST PROCEDURAL COMPLICATION [None]
  - POSTOPERATIVE ADHESION [None]
